FAERS Safety Report 25761461 (Version 1)
Quarter: 2025Q3

REPORT INFORMATION
  Report Type: Spontaneous
  Country: US (occurrence: US)
  Receive Date: 20250904
  Receipt Date: 20250904
  Transmission Date: 20251021
  Serious: No
  Sender: MEDEXUS PHARMA
  Company Number: US-MEDEXUS PHARMA, INC.-2024MED00339

PATIENT
  Age: 68 Year
  Sex: Female

DRUGS (1)
  1. RASUVO [Suspect]
     Active Substance: METHOTREXATE SODIUM

REACTIONS (9)
  - Joint swelling [Unknown]
  - Pain in extremity [Unknown]
  - Inflammation [Unknown]
  - Arthritis [Unknown]
  - Discomfort [Unknown]
  - Device mechanical issue [Unknown]
  - Device failure [Unknown]
  - Device delivery system issue [Unknown]
  - Product dose omission issue [Unknown]

NARRATIVE: CASE EVENT DATE: 20240810
